FAERS Safety Report 4479799-4 (Version None)
Quarter: 2004Q3

REPORT INFORMATION
  Report Type: 
  Country: None (occurrence: None)
  Receive Date: 20040923
  Receipt Date: 20040325
  Transmission Date: 20050211
  Serious: No
  Sender: FDA-Public Use
  Company Number: USA040363153

PATIENT
  Age: 69 Year
  Sex: Female
  Weight: 61 kg

DRUGS (14)
  1. FORTEO [Suspect]
     Indication: OSTEOPOROSIS
     Dates: start: 20031119
  2. DEMADEX [Concomitant]
  3. SPIRONOLACTONE [Concomitant]
  4. CALCIUM PLUS D [Concomitant]
  5. TUMS ULTRA (CALCIUM CARBONATE) [Concomitant]
  6. MULTI-VITAMIN [Concomitant]
  7. IRON [Concomitant]
  8. VICODIN [Concomitant]
  9. FOLIC ACID [Concomitant]
  10. COUMADIN [Concomitant]
  11. COREG (CARVEDIOLOL) [Concomitant]
  12. K-DUR 10 [Concomitant]
  13. CITRUCEL (METHYLCELLULOSE) [Concomitant]
  14. HYDROCODONE [Concomitant]

REACTIONS (13)
  - APATHY [None]
  - ASTHENIA [None]
  - DECREASED APPETITE [None]
  - HYPOKINESIA [None]
  - INFECTION [None]
  - INJECTION SITE HAEMORRHAGE [None]
  - INJECTION SITE PAIN [None]
  - LETHARGY [None]
  - MUSCLE CRAMP [None]
  - MUSCULAR WEAKNESS [None]
  - PAIN IN EXTREMITY [None]
  - SOMNOLENCE [None]
  - WEIGHT DECREASED [None]
